FAERS Safety Report 18952049 (Version 2)
Quarter: 2021Q2

REPORT INFORMATION
  Report Type: Spontaneous
  Country: US (occurrence: US)
  Receive Date: 20210301
  Receipt Date: 20210416
  Transmission Date: 20210717
  Serious: No
  Sender: FDA-Public Use
  Company Number: US-APOTEX-2021AP003638

PATIENT
  Sex: Male

DRUGS (1)
  1. AZELASTINE HCL NASAL SOLUTION [Suspect]
     Active Substance: AZELASTINE HYDROCHLORIDE
     Indication: HYPERSENSITIVITY
     Dosage: 1 SPRAY IN EACH NOSTRIL, BID
     Route: 045

REACTIONS (4)
  - No adverse event [Unknown]
  - Device delivery system issue [Unknown]
  - Product use issue [Unknown]
  - Product delivery mechanism issue [Unknown]
